FAERS Safety Report 20425729 (Version 1)
Quarter: 2022Q1

REPORT INFORMATION
  Report Type: Report from Study
  Country: US (occurrence: US)
  Receive Date: 20220204
  Receipt Date: 20220204
  Transmission Date: 20220423
  Serious: No
  Sender: FDA-Public Use
  Company Number: US-EXELIXIS-CABO-21040155

PATIENT
  Age: 70 Year
  Sex: Male

DRUGS (1)
  1. CABOMETYX [Suspect]
     Active Substance: CABOZANTINIB S-MALATE
     Indication: Renal cancer
     Dosage: 20 MG, QD
     Route: 048
     Dates: start: 20210409, end: 20210727

REACTIONS (9)
  - Tongue coated [Recovering/Resolving]
  - Carcinoid syndrome [Unknown]
  - Oral pain [Unknown]
  - Glossodynia [Unknown]
  - Rectal haemorrhage [Unknown]
  - Taste disorder [Recovering/Resolving]
  - Palmar-plantar erythrodysaesthesia syndrome [Recovering/Resolving]
  - Epistaxis [Recovered/Resolved]
  - Stomatitis [Unknown]

NARRATIVE: CASE EVENT DATE: 20210516
